FAERS Safety Report 11748716 (Version 1)
Quarter: 2015Q4

REPORT INFORMATION
  Report Type: Report from Study
  Country: US (occurrence: US)
  Receive Date: 20151117
  Receipt Date: 20151117
  Transmission Date: 20160304
  Serious: No
  Sender: FDA-Public Use
  Company Number: US-AMGEN-USASP2015119504

PATIENT
  Age: 51 Year
  Sex: Female

DRUGS (3)
  1. ENBREL [Suspect]
     Active Substance: ETANERCEPT
     Indication: RHEUMATOID ARTHRITIS
  2. ENBREL [Suspect]
     Active Substance: ETANERCEPT
     Indication: PSORIATIC ARTHROPATHY
  3. ENBREL [Suspect]
     Active Substance: ETANERCEPT
     Indication: PSORIASIS
     Dosage: 50 MG, QWK
     Route: 065
     Dates: start: 20151012

REACTIONS (14)
  - Injection site pruritus [Unknown]
  - Injection site warmth [Unknown]
  - Feeling abnormal [Unknown]
  - Confusional state [Unknown]
  - Injection site reaction [Unknown]
  - Dysphonia [Unknown]
  - Dizziness [Unknown]
  - Anxiety [Unknown]
  - Rhinorrhoea [Unknown]
  - Injection site rash [Unknown]
  - Injection site haemorrhage [Unknown]
  - Nervousness [Unknown]
  - Injection site swelling [Unknown]
  - Injection site erythema [Unknown]

NARRATIVE: CASE EVENT DATE: 201510
